FAERS Safety Report 25273712 (Version 1)
Quarter: 2025Q2

REPORT INFORMATION
  Report Type: Spontaneous
  Country: US (occurrence: US)
  Receive Date: 20250506
  Receipt Date: 20250506
  Transmission Date: 20250716
  Serious: Yes (Death, Hospitalization, Other)
  Sender: AMGEN
  Company Number: US-AMGEN-USASP2025086939

PATIENT
  Age: 57 Year
  Sex: Male

DRUGS (1)
  1. PREDNISONE [Suspect]
     Active Substance: PREDNISONE
     Indication: Acute kidney injury
     Dosage: 30 MILLIGRAM, QD
     Route: 065

REACTIONS (4)
  - Death [Fatal]
  - Acute kidney injury [Unknown]
  - Drug effective for unapproved indication [Unknown]
  - Off label use [Unknown]
